FAERS Safety Report 20840188 (Version 1)
Quarter: 2022Q2

REPORT INFORMATION
  Report Type: Other
  Country: None (occurrence: US)
  Receive Date: 20220517
  Receipt Date: 20220517
  Transmission Date: 20220720
  Serious: No
  Sender: FDA-Public Use
  Company Number: US-Fagron Sterile Services-2128860

PATIENT

DRUGS (1)
  1. LIDOCAINE\PHENYLEPHRINE [Suspect]
     Active Substance: LIDOCAINE\PHENYLEPHRINE

REACTIONS (1)
  - Oedema [None]
